FAERS Safety Report 7739242-6 (Version None)
Quarter: 2011Q3

REPORT INFORMATION
  Report Type: 
  Country: None (occurrence: None)
  Receive Date: 20110909
  Receipt Date: 20110829
  Transmission Date: 20111222
  Serious: Yes (Other)
  Sender: FDA-Public Use
  Company Number: US-JNJFOC-20110813419

PATIENT
  Sex: Male
  Weight: 85.28 kg

DRUGS (1)
  1. ZYTIGA [Suspect]
     Indication: PROSTATE CANCER
     Dosage: DOSE STRENGTH: 250 MG
     Route: 048
     Dates: start: 20110601

REACTIONS (4)
  - PROSTATIC SPECIFIC ANTIGEN DECREASED [None]
  - DRUG INEFFECTIVE [None]
  - INCORRECT STORAGE OF DRUG [None]
  - PROSTATIC SPECIFIC ANTIGEN INCREASED [None]
